FAERS Safety Report 8221621-4 (Version None)
Quarter: 2012Q1

REPORT INFORMATION
  Report Type: 
  Country: None (occurrence: None)
  Receive Date: 20120316
  Receipt Date: 20120302
  Transmission Date: 20120608
  Serious: Yes (Hospitalization)
  Sender: FDA-Public Use
  Company Number: 2012HGS-003165

PATIENT
  Age: 41 Year
  Sex: Female
  Weight: 95.709 kg

DRUGS (14)
  1. TOPIRAMATE [Concomitant]
  2. SYNTHROID (LEVOTHYROXINE SODIUM) (LEVOTHYROXINE SODIUM) [Concomitant]
  3. VITAMIN D3 (COLECALCIFEROL) (COLECALCIFEROL) [Concomitant]
  4. PROAIR HFA (SALBUTAMOL SULFATE) (SALBUTAMOL SULFATE) [Concomitant]
  5. BENLYSTA [Suspect]
     Indication: SYSTEMIC LUPUS ERYTHEMATOSUS
     Dosage: 10 MG/KG, 1 IN 4 WK, INTRAVENOUS DRIP
     Route: 041
     Dates: start: 20111118
  6. PREDNISONE [Concomitant]
  7. NEXIUM [Concomitant]
  8. SEROQUEL XR (QUETIAPINE FUMARATE) (QUETIAPINE FUMARATE) [Concomitant]
  9. METHOTREXATE [Concomitant]
  10. FOLIC ACID [Concomitant]
  11. CLONAZEPAM [Concomitant]
  12. VENLAFAXINE ER (VENLAFAXINE) (VENLAFAXINE) [Concomitant]
  13. DULERA (DULERA) (FORMOTEROL FUMARATE, MOMETASONE FUROATE) [Concomitant]
  14. PLAQUENIL [Concomitant]

REACTIONS (8)
  - NAUSEA [None]
  - VOMITING [None]
  - HYPOAESTHESIA [None]
  - HEADACHE [None]
  - MONONEUROPATHY [None]
  - TOOTH ABSCESS [None]
  - PARAESTHESIA [None]
  - ABDOMINAL PAIN UPPER [None]
